FAERS Safety Report 25820094 (Version 3)
Quarter: 2025Q4

REPORT INFORMATION
  Report Type: Report from Study
  Country: US (occurrence: US)
  Receive Date: 20250919
  Receipt Date: 20251016
  Transmission Date: 20260118
  Serious: Yes (Other)
  Sender: ABBVIE
  Company Number: US-ABBVIE-6463648

PATIENT
  Age: 81 Year
  Sex: Male

DRUGS (3)
  1. CREON [Suspect]
     Active Substance: PANCRELIPASE AMYLASE\PANCRELIPASE LIPASE\PANCRELIPASE PROTEASE
     Indication: Product used for unknown indication
     Dosage: 24,000 LIPASE UNITS WITH MEALS , LAST ADMIN DATE: 2025
     Route: 048
     Dates: start: 20250818
  2. CREON [Suspect]
     Active Substance: PANCRELIPASE AMYLASE\PANCRELIPASE LIPASE\PANCRELIPASE PROTEASE
     Indication: Product used for unknown indication
     Dosage: LAST ADMIN-2025
     Route: 048
     Dates: start: 20250715
  3. CREON [Suspect]
     Active Substance: PANCRELIPASE AMYLASE\PANCRELIPASE LIPASE\PANCRELIPASE PROTEASE
     Indication: Product used for unknown indication
     Dosage: 2 CREON 24,000 LIPASE UNITS WITH EACH MEAL,?FIST ADMIN : 2025
     Route: 048

REACTIONS (2)
  - Chemotherapy [Unknown]
  - Abdominal distension [Recovered/Resolved]

NARRATIVE: CASE EVENT DATE: 20250101
